FAERS Safety Report 22959254 (Version 2)
Quarter: 2023Q4

REPORT INFORMATION
  Report Type: Spontaneous
  Country: US (occurrence: US)
  Receive Date: 20230920
  Receipt Date: 20231003
  Transmission Date: 20240110
  Serious: Yes (Hospitalization, Other)
  Sender: FDA-Public Use
  Company Number: US-STRIDES ARCOLAB LIMITED-2023SP014474

PATIENT
  Age: 35 Year
  Sex: Male

DRUGS (5)
  1. HYDROXYZINE HYDROCHLORIDE [Suspect]
     Active Substance: HYDROXYZINE HYDROCHLORIDE
     Indication: Anxiety
     Dosage: 50 MILLIGRAM, EVERY 6 HRS (RECEIVED ONE DOSE FOR ANXIETY ON DAY 3 DURING HIS ENTIRE HOSPITAL STAY)
     Route: 048
  2. HYDROXYZINE HYDROCHLORIDE [Suspect]
     Active Substance: HYDROXYZINE HYDROCHLORIDE
     Indication: Insomnia
     Dosage: UNK, AT BED TIME, (RECEIVED NIGHTLY FOR INSOMNIA INCLUDING THE NIGHT BEFORE ADMISSION)
     Route: 048
  3. RISPERIDONE [Suspect]
     Active Substance: RISPERIDONE
     Indication: Psychotic disorder
     Dosage: 2 MILLIGRAM, AT BED TIME (RECEIVED NIGHTLY AT BEDTIME)
     Route: 048
  4. RISPERIDONE [Suspect]
     Active Substance: RISPERIDONE
     Dosage: 4 MILLIGRAM, AT BED TIME (TITRATED TO 4 MG NIGHTLY BEFORE HOSPITAL DISCHARGE)
     Route: 048
  5. RISPERIDONE [Suspect]
     Active Substance: RISPERIDONE
     Dosage: 3 MILLIGRAM (DECREASED)
     Route: 048

REACTIONS (2)
  - Priapism [Recovered/Resolved]
  - Off label use [Unknown]
